FAERS Safety Report 16069701 (Version 1)
Quarter: 2019Q1

REPORT INFORMATION
  Report Type: Spontaneous
  Country: IT (occurrence: IT)
  Receive Date: 20190314
  Receipt Date: 20190314
  Transmission Date: 20190418
  Serious: Yes (Death)
  Sender: FDA-Public Use
  Company Number: IT-009507513-1903ITA003758

PATIENT
  Age: 75 Year
  Sex: Female
  Weight: 58 kg

DRUGS (1)
  1. KEYTRUDA [Suspect]
     Active Substance: PEMBROLIZUMAB
     Indication: LUNG NEOPLASM
     Dosage: 200 MILLIGRAM
     Route: 042
     Dates: start: 20190111, end: 20190111

REACTIONS (5)
  - Lung disorder [Fatal]
  - Asthenia [Fatal]
  - Terminal state [Fatal]
  - Nephropathy [Fatal]
  - Pyrexia [Fatal]

NARRATIVE: CASE EVENT DATE: 20190117
